FAERS Safety Report 25871781 (Version 1)
Quarter: 2025Q4

REPORT INFORMATION
  Report Type: Spontaneous
  Country: GB (occurrence: GB)
  Receive Date: 20251001
  Receipt Date: 20251001
  Transmission Date: 20260117
  Serious: Yes (Life-Threatening, Other)
  Sender: PURDUE
  Company Number: None

PATIENT
  Age: 38 Year
  Sex: Male

DRUGS (1)
  1. OXYCONTIN [Suspect]
     Active Substance: OXYCODONE HYDROCHLORIDE
     Indication: Adverse drug reaction
     Dosage: 300MG A DAY
     Route: 065

REACTIONS (36)
  - Medication error [Unknown]
  - Suicidal ideation [Recovering/Resolving]
  - Depression [Recovering/Resolving]
  - Influenza [Recovering/Resolving]
  - Deafness traumatic [Recovered/Resolved with Sequelae]
  - Family stress [Not Recovered/Not Resolved]
  - Insomnia [Not Recovered/Not Resolved]
  - Feeling guilty [Not Recovered/Not Resolved]
  - Drug dependence [Not Recovered/Not Resolved]
  - Decreased appetite [Recovering/Resolving]
  - Sex hormone binding globulin decreased [Not Recovered/Not Resolved]
  - Social anxiety disorder [Not Recovered/Not Resolved]
  - Craniocerebral injury [Recovering/Resolving]
  - Self esteem inflated [Not Recovered/Not Resolved]
  - Autophobia [Not Recovered/Not Resolved]
  - Self-destructive behaviour [Recovering/Resolving]
  - Self-medication [Not Recovered/Not Resolved]
  - Loss of personal independence in daily activities [Recovering/Resolving]
  - Self-consciousness [Not Recovered/Not Resolved]
  - Stereotypy [Not Recovered/Not Resolved]
  - Intentional self-injury [Not Recovered/Not Resolved]
  - Morning sickness [Not Recovered/Not Resolved]
  - Epigastric discomfort [Recovered/Resolved with Sequelae]
  - Nightmare [Not Recovered/Not Resolved]
  - Injury [Not Recovered/Not Resolved]
  - Product prescribing error [Not Recovered/Not Resolved]
  - Product adhesion issue [Not Recovered/Not Resolved]
  - Neglect of personal appearance [Recovering/Resolving]
  - Loss of consciousness [Recovered/Resolved]
  - Sexual life impairment [Not Recovered/Not Resolved]
  - Suicidal ideation [Recovering/Resolving]
  - Social problem [Not Recovered/Not Resolved]
  - Brief resolved unexplained event [Not Recovered/Not Resolved]
  - Mental fatigue [Recovering/Resolving]
  - Living alone [Recovered/Resolved]
  - Toxicity to various agents [Recovering/Resolving]

NARRATIVE: CASE EVENT DATE: 20170308
